FAERS Safety Report 17917550 (Version 5)
Quarter: 2020Q3

REPORT INFORMATION
  Report Type: Spontaneous
  Country: DE (occurrence: DE)
  Receive Date: 20200619
  Receipt Date: 20200720
  Transmission Date: 20201103
  Serious: Yes (Life-Threatening, Hospitalization, Other)
  Sender: FDA-Public Use
  Company Number: DE-PFIZER INC-2020238426

PATIENT
  Age: 75 Year
  Sex: Male
  Weight: 80 kg

DRUGS (17)
  1. RIVAROXABAN [Concomitant]
     Active Substance: RIVAROXABAN
     Dosage: 15 MG, 1X/DAY (1?0?0?0, TABLETTEN)
     Route: 048
  2. NOVODIGAL (.BETA.?ACETYLDIGOXIN) [Concomitant]
     Active Substance: .BETA.-ACETYLDIGOXIN
     Dosage: 0.1 MG, 1X/DAY
     Route: 048
  3. BISOPROLOL [Concomitant]
     Active Substance: BISOPROLOL
     Dosage: 5 MG, 1X/DAY (1?0?0?0, TABLETTEN)
     Route: 048
  4. FERRO?SANOL DUODENAL [Concomitant]
     Active Substance: FERROUS GLYCINE SULFATE
     Dosage: 50 MG, 1X/DAY (QD, 1?0?0?0)
     Route: 048
  5. FUROSEMIDE. [Interacting]
     Active Substance: FUROSEMIDE
     Dosage: 20 MG, 1X/DAY (QD, 1?0?0?0)
     Route: 048
  6. TAMSULOSIN [Concomitant]
     Active Substance: TAMSULOSIN
     Dosage: 0.4 MG, 1X/DAY
     Route: 048
  7. BISOPROLOL [Concomitant]
     Active Substance: BISOPROLOL
     Dosage: 5 MG, 1X/DAY
     Route: 048
  8. RIVAROXABAN [Concomitant]
     Active Substance: RIVAROXABAN
     Dosage: 15 MG, 1X/DAY (QD, 1?0?0?0)
     Route: 048
  9. BICALUTAMIDE. [Interacting]
     Active Substance: BICALUTAMIDE
     Dosage: 150 MG, 1X/DAY (QD, 1?0?0?0)
     Route: 048
  10. HYDROCHLOROTHIAZIDE/RAMIPRIL [Interacting]
     Active Substance: HYDROCHLOROTHIAZIDE\RAMIPRIL
     Dosage: 1 DF, 1X/DAY (QD (25|5 MG) 1?0?0?0)
     Route: 048
  11. METAMIZOLE [Interacting]
     Active Substance: METAMIZOLE
     Dosage: 500 MG, 4X/DAY (QID,1?1?1?1)
     Route: 048
  12. NOVODIGAL (.BETA.?ACETYLDIGOXIN) [Concomitant]
     Active Substance: .BETA.-ACETYLDIGOXIN
     Dosage: 0.1 MG, 1X/DAY
     Route: 048
  13. RAMIPRIL. [Suspect]
     Active Substance: RAMIPRIL
     Dosage: 5 MG, 1X/DAY (QD 0?0?1?0)
     Route: 048
  14. FEBUXOSTAT. [Concomitant]
     Active Substance: FEBUXOSTAT
     Dosage: 80 MG, 1X/DAY
     Route: 048
  15. ACETYLSALICYLIC ACID [Concomitant]
     Active Substance: ASPIRIN
     Dosage: 100 MG, 1X/DAY
     Route: 048
  16. SPIRONOLACTONE. [Interacting]
     Active Substance: SPIRONOLACTONE
     Dosage: 50 MG, 1X/DAY (QD, 1?0?0?0)
     Route: 048
  17. NALOXONE HYDROCHLORIDE/TILIDINE HYDROCHLORIDE [Concomitant]
     Active Substance: NALOXONE HYDROCHLORIDE\TILIDINE HYDROCHLORIDE
     Dosage: 1 DF, 2X/DAY (BID, 4|50 MG, 1?0?1?0)
     Route: 048

REACTIONS (9)
  - Contraindicated product administered [Unknown]
  - Renal impairment [Unknown]
  - Torsade de pointes [Recovered/Resolved with Sequelae]
  - Product administration error [Unknown]
  - Anaemia [Unknown]
  - Acute kidney injury [Recovered/Resolved with Sequelae]
  - Acute myocardial infarction [Recovered/Resolved with Sequelae]
  - Labelled drug-drug interaction medication error [Unknown]
  - Electrolyte imbalance [Unknown]

NARRATIVE: CASE EVENT DATE: 2019
